FAERS Safety Report 10977277 (Version 1)
Quarter: 2015Q1

REPORT INFORMATION
  Report Type: Spontaneous
  Country: JP (occurrence: None)
  Receive Date: 20150330
  Receipt Date: 20150330
  Transmission Date: 20150721
  Serious: Yes (Hospitalization)
  Sender: FDA-Public Use
  Company Number: JP-20150063

PATIENT
  Age: 7 Decade
  Sex: Male

DRUGS (5)
  1. FLOMOXEF SODIUM [Concomitant]
     Active Substance: FLOMOXEF SODIUM
  2. EPIRUBICIN (EPIRUBICIN HYDROCHLORIDE) [Concomitant]
  3. HEPARIN SODIUM. [Concomitant]
     Active Substance: HEPARIN SODIUM
  4. MITOMYCIN C [Concomitant]
     Active Substance: MITOMYCIN
  5. LIPIODOL ULTRA-FLUIDE [Suspect]
     Active Substance: ETHIODIZED OIL
     Indication: THERAPEUTIC EMBOLISATION
     Route: 013
     Dates: start: 20010530, end: 20010530

REACTIONS (9)
  - Disseminated intravascular coagulation [None]
  - Product use issue [None]
  - General physical health deterioration [None]
  - Oedema peripheral [None]
  - Fatigue [None]
  - Liver abscess [None]
  - Inflammation [None]
  - Hepatic function abnormal [None]
  - Enterococcus test positive [None]

NARRATIVE: CASE EVENT DATE: 2001
